FAERS Safety Report 20246376 (Version 1)
Quarter: 2021Q4

REPORT INFORMATION
  Report Type: Spontaneous
  Country: US (occurrence: US)
  Receive Date: 20211229
  Receipt Date: 20211229
  Transmission Date: 20220303
  Serious: Yes (Other)
  Sender: FDA-Public Use
  Company Number: US-ALLERGAN-2139868US

PATIENT
  Sex: Female

DRUGS (4)
  1. REFRESH OPTIVE ADVANCED [Suspect]
     Active Substance: CARBOXYMETHYLCELLULOSE SODIUM\GLYCERIN\POLYSORBATE 80
     Indication: Dry eye
     Dosage: 2 GTT, EVERY 2 HRS
     Route: 047
  2. REFRESH OPTIVE ADVANCED [Suspect]
     Active Substance: CARBOXYMETHYLCELLULOSE SODIUM\GLYCERIN\POLYSORBATE 80
     Indication: Corneal disorder
  3. UNSPECIFIED INGREDIENT [Concomitant]
     Active Substance: UNSPECIFIED INGREDIENT
     Dosage: UNK
     Route: 047
  4. Unknown gel eye drop [Concomitant]
     Dosage: UNK, QPM
     Route: 047

REACTIONS (2)
  - Surgery [Unknown]
  - Product use in unapproved indication [Unknown]
